FAERS Safety Report 19288670 (Version 1)
Quarter: 2021Q2

REPORT INFORMATION
  Report Type: Spontaneous
  Country: US (occurrence: US)
  Receive Date: 20210521
  Receipt Date: 20210521
  Transmission Date: 20210717
  Serious: Yes (Other)
  Sender: FDA-Public Use
  Company Number: US-GLAXOSMITHKLINE-US2021GSK108682

PATIENT
  Sex: Male

DRUGS (8)
  1. RANITIDINE. [Suspect]
     Active Substance: RANITIDINE
     Dosage: 75 MG, QD
     Dates: start: 201401, end: 201908
  2. RANITIDINE. [Suspect]
     Active Substance: RANITIDINE
     Dosage: 75 MG, QD
     Dates: start: 201401, end: 201908
  3. RANITIDINE. [Suspect]
     Active Substance: RANITIDINE
     Dosage: 75 MG, QD
     Dates: start: 201401, end: 201908
  4. RANITIDINE HYDROCHLORIDE. [Suspect]
     Active Substance: RANITIDINE HYDROCHLORIDE
     Dosage: 50 MG/ML, QD
     Dates: start: 201401, end: 201908
  5. ZANTAC [Suspect]
     Active Substance: RANITIDINE HYDROCHLORIDE
     Dosage: 50 MG/ML, QD
     Dates: start: 201401, end: 201908
  6. ZANTAC [Suspect]
     Active Substance: RANITIDINE HYDROCHLORIDE
     Dosage: 75 MG, QD
     Dates: start: 201402, end: 201908
  7. RANITIDINE CAPSULE [Suspect]
     Active Substance: RANITIDINE
     Dosage: 75 MG, QD
     Dates: start: 201401, end: 201908
  8. ZANTAC [Suspect]
     Active Substance: RANITIDINE HYDROCHLORIDE
     Dosage: 75 MG, QD
     Dates: start: 201402, end: 201908

REACTIONS (1)
  - Gastric cancer [Unknown]
